FAERS Safety Report 5509786-6 (Version None)
Quarter: 2007Q4

REPORT INFORMATION
  Report Type: 
  Country: None (occurrence: None)
  Receive Date: 20071108
  Receipt Date: 20071101
  Transmission Date: 20080405
  Serious: Yes (Other)
  Sender: FDA-Public Use
  Company Number: PHBS2007BR18391

PATIENT
  Age: 19 Year
  Sex: Male

DRUGS (5)
  1. CARBAMAZEPINE [Concomitant]
     Indication: DEPRESSION
     Dosage: 200 MG, QHS
     Route: 048
     Dates: start: 20070601
  2. MELLARIL [Suspect]
     Indication: DEPRESSION
     Dosage: 50 MG, QHS
     Route: 048
     Dates: start: 20071001
  3. RIVOTRIL [Concomitant]
     Dosage: 2 MG, QHS
     Route: 048
  4. FLUOXETINE [Concomitant]
     Indication: DEPRESSION
     Dosage: 20 MG, QD
     Route: 048
  5. PURAN T4 [Concomitant]
     Indication: HYPERTHYROIDISM
     Dosage: 75 MG, QD
     Route: 048

REACTIONS (1)
  - DIZZINESS [None]
